FAERS Safety Report 13322486 (Version 1)
Quarter: 2017Q1

REPORT INFORMATION
  Report Type: Spontaneous
  Country: NL (occurrence: NL)
  Receive Date: 20170309
  Receipt Date: 20170309
  Transmission Date: 20170428
  Serious: Yes (Other)
  Sender: FDA-Public Use
  Company Number: NL-009507513-1703NLD002084

PATIENT
  Age: 43 Year
  Sex: Female
  Weight: 66 kg

DRUGS (2)
  1. ALBUTEROL. [Concomitant]
     Active Substance: ALBUTEROL
     Dosage: 100UG/DO
     Route: 055
     Dates: start: 19840101
  2. ELOCON [Suspect]
     Active Substance: MOMETASONE FUROATE
     Indication: ECZEMA
     Dosage: STRENGTH 1MG/G, 1 DF, TIW (EXTRA INFO: LAST YEAR 3 TIMES PER WEEK)
     Route: 003
     Dates: start: 20020501

REACTIONS (3)
  - Eczema [Recovering/Resolving]
  - Steroid withdrawal syndrome [Recovering/Resolving]
  - Erythema [Recovering/Resolving]

NARRATIVE: CASE EVENT DATE: 20151001
